FAERS Safety Report 17935077 (Version 5)
Quarter: 2020Q3

REPORT INFORMATION
  Report Type: Spontaneous
  Country: US (occurrence: US)
  Receive Date: 20200624
  Receipt Date: 20200928
  Transmission Date: 20201103
  Serious: No
  Sender: FDA-Public Use
  Company Number: US-PFIZER INC-2019528745

PATIENT
  Age: 83 Year
  Sex: Female
  Weight: 74.84 kg

DRUGS (2)
  1. IBRANCE [Suspect]
     Active Substance: PALBOCICLIB
     Indication: BREAST CANCER FEMALE
     Dosage: 125 MG, CYCLIC [ONE TIME A DAY BY MOUTH FOR 21 DAYS AND OFF]
     Route: 048
  2. IBRANCE [Suspect]
     Active Substance: PALBOCICLIB
     Indication: BREAST CANCER STAGE IV
     Dosage: 100 MG

REACTIONS (11)
  - Odynophagia [Unknown]
  - Nasal dryness [Unknown]
  - Product dispensing issue [Unknown]
  - Red blood cell count decreased [Unknown]
  - Stomatitis [Unknown]
  - Mouth injury [Unknown]
  - Product use complaint [Unknown]
  - White blood cell count decreased [Unknown]
  - Skin discolouration [Unknown]
  - Dry skin [Unknown]
  - Lip exfoliation [Unknown]
